FAERS Safety Report 4957602-3 (Version None)
Quarter: 2006Q1

REPORT INFORMATION
  Report Type: 
  Country: None (occurrence: None)
  Receive Date: 20060330
  Receipt Date: 20060315
  Transmission Date: 20060701
  Serious: Yes (Other)
  Sender: FDA-Public Use
  Company Number: HQWYE406720MAR06

PATIENT
  Sex: Female
  Weight: 84 kg

DRUGS (16)
  1. ENBREL [Suspect]
     Indication: RHEUMATOID ARTHRITIS
     Route: 058
     Dates: start: 20050712, end: 20051227
  2. SULFASALAZINE [Concomitant]
     Indication: RHEUMATOID ARTHRITIS
     Dates: end: 20050920
  3. SULFASALAZINE [Concomitant]
     Dosage: UNKNOWN
     Route: 048
  4. ALFACALCIDOL [Concomitant]
     Dosage: UNKNOWN
  5. TEPRENONE [Concomitant]
     Dosage: UNKNOWN
  6. MUCOSOLVAN [Concomitant]
     Dosage: UNKNOWN
  7. CANDESARTAN CILEXETIL [Concomitant]
     Dosage: UNKNOWN
  8. ACETYLSALICYLIC ACID SRT [Concomitant]
     Dosage: UNKNOWN
  9. NORVASC [Concomitant]
     Dosage: UNKNOWN
  10. ERYTHROCIN [Concomitant]
     Dosage: UNKNOWN
  11. MOBIC [Concomitant]
     Indication: RHEUMATOID ARTHRITIS
     Dosage: UNKNOWN
  12. RISEDRONIC  ACID [Concomitant]
     Dosage: UNKNOWN
  13. MONTELUKAST SODIUM [Concomitant]
     Dosage: UNKNOWN
  14. LANSOPRAZOLE [Concomitant]
     Dosage: UNKNOWN
  15. ZOLPIDEM TARTRATE [Concomitant]
     Dosage: UNKNOWN
  16. CEVIMELINE HYDROCHLORIDE [Concomitant]
     Dosage: UNKNOWN

REACTIONS (1)
  - INTESTINAL ISCHAEMIA [None]
